FAERS Safety Report 8202455-3 (Version None)
Quarter: 2012Q1

REPORT INFORMATION
  Report Type: 
  Country: None (occurrence: None)
  Receive Date: 20120312
  Receipt Date: 20120202
  Transmission Date: 20120608
  Serious: No
  Sender: FDA-Public Use
  Company Number: US-ABBOTT-12P-163-0901744-00

PATIENT
  Sex: Male
  Weight: 86.26 kg

DRUGS (1)
  1. DEPAKOTE [Suspect]
     Indication: CONVULSION

REACTIONS (2)
  - SINUS CONGESTION [None]
  - NASOPHARYNGITIS [None]
